FAERS Safety Report 13439256 (Version 2)
Quarter: 2017Q2

REPORT INFORMATION
  Report Type: Other
  Country: IT (occurrence: IT)
  Receive Date: 20170413
  Receipt Date: 20170628
  Transmission Date: 20170830
  Serious: Yes (Life-Threatening)
  Sender: FDA-Public Use
  Company Number: IT-HIKMA PHARMACEUTICALS CO. LTD-2017IT004405

PATIENT

DRUGS (9)
  1. CEFOTAXIME [Concomitant]
     Active Substance: CEFOTAXIME SODIUM
     Indication: PYREXIA
     Dosage: 3 G, UNK
     Dates: start: 20170329, end: 20170331
  2. MESALAZINE [Concomitant]
     Active Substance: MESALAMINE
     Indication: COLITIS ULCERATIVE
     Dosage: 3600 MG, UNK
     Dates: start: 20131001, end: 20170331
  3. FONDAPARINUX SODIUM. [Concomitant]
     Active Substance: FONDAPARINUX SODIUM
     Indication: BUDD-CHIARI SYNDROME
     Dosage: 2.5 MG, UNK
     Route: 058
     Dates: start: 20170315, end: 20170331
  4. CITROVIRAX [Concomitant]
     Indication: CYTOMEGALOVIRUS INFECTION
     Dosage: 640 MG, UNK
     Dates: start: 20170329, end: 20170331
  5. AZATHIOPRINE. [Concomitant]
     Active Substance: AZATHIOPRINE
     Indication: COLITIS ULCERATIVE
     Dosage: 150 MG, UNK
     Dates: start: 20140501, end: 20170331
  6. REMSIMA [Suspect]
     Active Substance: INFLIXIMAB
     Indication: COLITIS ULCERATIVE
     Dosage: 315 MG, CYCLIC
     Route: 042
     Dates: start: 20170331, end: 20170331
  7. DAFLON                             /00426001/ [Concomitant]
     Active Substance: DIOSMIN
     Indication: HAEMORRHOIDS
     Dosage: 1 U, UNK
     Route: 048
  8. PREDNISONE. [Concomitant]
     Active Substance: PREDNISONE
     Indication: COLITIS ULCERATIVE
     Dosage: 30 MG, UNK
     Route: 048
     Dates: start: 20170215, end: 20170331
  9. OMEPRAZOLE. [Concomitant]
     Active Substance: OMEPRAZOLE
     Indication: HYPERCHLORHYDRIA
     Dosage: 40 MG, UNK
     Route: 048
     Dates: start: 20170314, end: 20170331

REACTIONS (5)
  - Encephalomyelitis [Not Recovered/Not Resolved]
  - Areflexia [Not Recovered/Not Resolved]
  - Brain stem haemorrhage [Not Recovered/Not Resolved]
  - Haemorrhage [Not Recovered/Not Resolved]
  - Coma [Not Recovered/Not Resolved]

NARRATIVE: CASE EVENT DATE: 20170331
